FAERS Safety Report 12932152 (Version 1)
Quarter: 2016Q4

REPORT INFORMATION
  Report Type: Spontaneous
  Country: IT (occurrence: IT)
  Receive Date: 20161111
  Receipt Date: 20161111
  Transmission Date: 20170207
  Serious: Yes (Other)
  Sender: FDA-Public Use
  Company Number: IT-SUN PHARMACEUTICAL INDUSTRIES LTD-2016RR-127241

PATIENT
  Age: 85 Year
  Sex: Female

DRUGS (3)
  1. TRAMADOL. [Suspect]
     Active Substance: TRAMADOL
     Indication: DRUG ABUSE
     Dosage: 75 MG TOTAL
     Route: 048
     Dates: start: 20160304, end: 20160304
  2. BUPRENORFINE RANBAXY 35 MICROGRAM/UUR, PLEISTER VOOR TRANSDERMAAL GEBR [Suspect]
     Active Substance: BUPRENORPHINE
     Indication: DRUG ABUSE
     Dosage: 75 MG TOTAL
     Route: 061
     Dates: start: 20160304, end: 20160304
  3. PARACETAMOL [Suspect]
     Active Substance: ACETAMINOPHEN
     Indication: DRUG ABUSE
     Dosage: 325 MG TOTAL
     Route: 048
     Dates: start: 20160304, end: 20160304

REACTIONS (5)
  - Abdominal pain [Recovered/Resolved]
  - Sopor [Recovered/Resolved]
  - Vomiting [Recovered/Resolved]
  - Drug abuse [Recovered/Resolved]
  - Nausea [Recovered/Resolved]

NARRATIVE: CASE EVENT DATE: 20160306
